FAERS Safety Report 6099029-X (Version None)
Quarter: 2009Q1

REPORT INFORMATION
  Report Type: 
  Country: None (occurrence: None)
  Receive Date: 20090302
  Receipt Date: 20090216
  Transmission Date: 20090719
  Serious: Yes (Hospitalization, Disabling)
  Sender: FDA-Public Use
  Company Number: GB-JNJFOC-20090300043

PATIENT
  Age: 86 Year
  Sex: Female

DRUGS (10)
  1. TRAMADOL HYDROCHLORIDE [Suspect]
     Indication: PAIN
     Route: 048
  2. PERHEXILINE [Suspect]
     Indication: LEFT VENTRICULAR FAILURE
     Route: 048
  3. ASPIRIN [Concomitant]
  4. BISOPROLOL [Concomitant]
  5. CLOPIDOGREL [Concomitant]
  6. ACETAMINOPHEN W/ CODEINE [Concomitant]
  7. ISOSORBIDE MONONITRATE [Concomitant]
  8. LANSOPRAZOLE [Concomitant]
  9. SIMVASTATIN [Concomitant]
  10. VALSARTIN [Concomitant]

REACTIONS (3)
  - DYSKINESIA [None]
  - MOBILITY DECREASED [None]
  - SPEECH DISORDER [None]
